FAERS Safety Report 15939598 (Version 1)
Quarter: 2019Q1

REPORT INFORMATION
  Report Type: Report from Study
  Country: US (occurrence: US)
  Receive Date: 20190208
  Receipt Date: 20190208
  Transmission Date: 20190417
  Serious: Yes (Hospitalization, Other)
  Sender: FDA-Public Use
  Company Number: US-MYLANLABS-2018M1088947

PATIENT
  Age: 64 Year
  Sex: Female

DRUGS (13)
  1. INOTUZUMAB OZOGAMICIN [Suspect]
     Active Substance: INOTUZUMAB OZOGAMICIN
     Dosage: UNK (OVER I HOUR ON DAY 3)
     Route: 042
  2. METHOTREXATE. [Suspect]
     Active Substance: METHOTREXATE
     Dosage: 200 MICROGRAM/SQ. METER (CONTINUOUS INFUSION OVER 22 HR ON DAY 1)
     Route: 042
  3. MESNA. [Suspect]
     Active Substance: MESNA
     Indication: ACUTE LYMPHOCYTIC LEUKAEMIA
     Dosage: 300 MICROGRAM/SQ. METER, QD (300MG/M2 INTRAVENOUSLY (IV) DAILY OVER 24 HOURS FOR 3 DAYS ON DAYS 1-3)
     Route: 042
  4. DEXAMETHASONE. [Suspect]
     Active Substance: DEXAMETHASONE
     Indication: ACUTE LYMPHOCYTIC LEUKAEMIA
     Dosage: 20 MICROGRAM, QD (20MG IV DAILY FOR 4 DAYS ON DAYS 1-4 AND DAYS 11-14)
     Route: 042
  5. CYTARABINE. [Suspect]
     Active Substance: CYTARABINE
     Indication: ACUTE LYMPHOCYTIC LEUKAEMIA
     Dosage: 0.5 GRAM PER SQUARE METRE,BID(0.5 G/M2 IV OVER 3 HOURS TWICE A DAYX4DOSES ON DAYS 2AND3)
     Route: 042
  6. VINCRISTINE [Suspect]
     Active Substance: VINCRISTINE
     Indication: ACUTE LYMPHOCYTIC LEUKAEMIA
     Dosage: 2 MICROGRAM (2MG IV DAY 1 AND DAY 8)
     Route: 042
  7. RITUXIMAB. [Suspect]
     Active Substance: RITUXIMAB
     Indication: ACUTE LYMPHOCYTIC LEUKAEMIA
     Dosage: 375 MICROGRAM/SQ. METER (375MG/M2 IV ON DAY 2 AND DAY 8 (CYCLES I AND 3 ONLY))
     Route: 042
  8. METHOTREXATE. [Suspect]
     Active Substance: METHOTREXATE
     Indication: ACUTE LYMPHOCYTIC LEUKAEMIA
     Dosage: 50 MICROGRAM/SQ. METER, Q2H (50 MG/M2 IV OVER 2HRS ON DAY 1)
     Route: 042
  9. CYTARABINE. [Suspect]
     Active Substance: CYTARABINE
     Dosage: 500 MICROGRAM/SQ. METER
     Route: 042
  10. INOTUZUMAB OZOGAMICIN [Suspect]
     Active Substance: INOTUZUMAB OZOGAMICIN
     Indication: ACUTE LYMPHOCYTIC LEUKAEMIA
     Dosage: 0.3 MICROGRAM/SQ. METER, CYCLE
     Route: 042
     Dates: start: 20180718, end: 20180929
  11. INOTUZUMAB OZOGAMICIN [Suspect]
     Active Substance: INOTUZUMAB OZOGAMICIN
     Dosage: (IV ON DAY 2 OR 3 (CYCLES 2 AND 4 ONLY))
     Route: 042
  12. PEGFILGRASTIM [Suspect]
     Active Substance: PEGFILGRASTIM
     Indication: ACUTE LYMPHOCYTIC LEUKAEMIA
     Dosage: 6 MG, CYCLE ((SUBQ) (OR FILGRASTIM 5-10 MCG/KG QD) ON DAY4 UNTIL RECOVERY OF GRANULOCYTE COUNT)
     Route: 058
  13. CYCLOPHOSPHAMIDE. [Suspect]
     Active Substance: CYCLOPHOSPHAMIDE
     Indication: ACUTE LYMPHOCYTIC LEUKAEMIA
     Dosage: 150 MICROGRAM/SQ. METER, Q2D (150MG/M2 IV OVER 3 HOURS TWICE A DAY ON DAYS 1-3)
     Route: 042

REACTIONS (1)
  - Ileus [Recovered/Resolved]

NARRATIVE: CASE EVENT DATE: 20181003
